FAERS Safety Report 16100151 (Version 1)
Quarter: 2019Q1

REPORT INFORMATION
  Report Type: Spontaneous
  Country: IL (occurrence: IL)
  Receive Date: 20190321
  Receipt Date: 20190321
  Transmission Date: 20190418
  Serious: Yes (Other)
  Sender: FDA-Public Use
  Company Number: IL-PFIZER INC-2019118794

PATIENT
  Age: 33 Year
  Sex: Female

DRUGS (2)
  1. RELERT [Suspect]
     Active Substance: ELETRIPTAN HYDROBROMIDE
     Indication: MIGRAINE
     Dosage: UNK
     Dates: start: 20060101
  2. TOPAMAX [Concomitant]
     Active Substance: TOPIRAMATE
     Dosage: UNK

REACTIONS (4)
  - Nausea [Unknown]
  - Fatigue [Unknown]
  - Malaise [Unknown]
  - Drug ineffective [Unknown]
